FAERS Safety Report 6531316-0 (Version None)
Quarter: 2010Q1

REPORT INFORMATION
  Report Type: 
  Country: None (occurrence: None)
  Receive Date: 20100108
  Receipt Date: 20091214
  Transmission Date: 20100710
  Serious: Yes (Hospitalization)
  Sender: FDA-Public Use
  Company Number: CA-SANOFI-AVENTIS-2009SA005400

PATIENT
  Sex: Female
  Weight: 56 kg

DRUGS (19)
  1. CLIKSTAR [Suspect]
     Dates: start: 20090922
  2. LANTUS [Suspect]
     Dosage: DOSE:7 UNIT(S)
     Route: 058
     Dates: start: 20080228
  3. HUMALOG [Concomitant]
     Dosage: DOSAGE LESS THAN 10U
     Route: 058
     Dates: start: 20031129
  4. CYMBALTA [Concomitant]
     Indication: PAIN
     Route: 048
     Dates: start: 20090115
  5. CYMBALTA [Concomitant]
     Route: 048
     Dates: start: 20090115
  6. PANTOPRAZOLE [Concomitant]
     Route: 048
     Dates: start: 20051129
  7. PANTOPRAZOLE [Concomitant]
     Route: 048
     Dates: start: 20051129
  8. FUROSEMIDE [Concomitant]
     Indication: FLUID RETENTION
     Route: 048
     Dates: start: 20051129
  9. SYNTHROID [Concomitant]
     Indication: HYPOTHYROIDISM
     Route: 048
     Dates: start: 20031129
  10. CRESTOR [Concomitant]
     Route: 048
     Dates: start: 20090715
  11. RAMIPRIL [Concomitant]
     Indication: HYPERTENSION
     Route: 048
     Dates: start: 20090715
  12. PERCOCET [Concomitant]
     Indication: PAIN
     Dates: start: 20090319
  13. TYLENOL W/ CODEINE NO. 3 [Concomitant]
     Indication: PAIN
     Route: 048
     Dates: start: 20051129
  14. GRAVOL TAB [Concomitant]
     Route: 048
     Dates: start: 20090922
  15. RISPERIDONE [Concomitant]
     Route: 048
     Dates: start: 20090815
  16. ATIVAN [Concomitant]
     Indication: SLEEP DISORDER
     Route: 048
     Dates: start: 20080915
  17. LOPERAMIDE [Concomitant]
     Route: 048
     Dates: start: 20070922
  18. ERYTHROMYCIN [Concomitant]
     Route: 048
     Dates: start: 20070922
  19. CODEINE [Concomitant]
     Route: 048
     Dates: start: 20090715

REACTIONS (2)
  - DIABETIC KETOACIDOSIS [None]
  - VOMITING [None]
